FAERS Safety Report 24416269 (Version 1)
Quarter: 2024Q4

REPORT INFORMATION
  Report Type: Spontaneous
  Country: DE (occurrence: DE)
  Receive Date: 20241009
  Receipt Date: 20241009
  Transmission Date: 20250115
  Serious: Yes (Hospitalization)
  Sender: SANOFI AVENTIS
  Company Number: None

PATIENT
  Age: 60 Year
  Sex: Female

DRUGS (1)
  1. DUPIXENT [Suspect]
     Active Substance: DUPILUMAB
     Indication: Dermatitis atopic
     Dosage: 300 MG EVERY 2 WEEKS
     Route: 058
     Dates: start: 20220501, end: 20231224

REACTIONS (5)
  - Hemiparesis [Recovering/Resolving]
  - Cerebral infarction [Recovering/Resolving]
  - Dermatomyositis [Recovering/Resolving]
  - Vasculitis [Recovering/Resolving]
  - Eosinophilia [Recovering/Resolving]

NARRATIVE: CASE EVENT DATE: 20231224
